FAERS Safety Report 8107067-8 (Version None)
Quarter: 2011Q4

REPORT INFORMATION
  Report Type: 
  Country: None (occurrence: None)
  Receive Date: 20111227
  Receipt Date: 20110920
  Transmission Date: 20120403
  Serious: No
  Sender: FDA-Public Use
  Company Number: PHEH2011US04685

PATIENT
  Age: 44 Year
  Sex: Female

DRUGS (4)
  1. COPAXONE [Concomitant]
  2. ENABLEX [Concomitant]
  3. ZOLPIDEM [Concomitant]
  4. GILENYA [Suspect]
     Dosage: 0.5 MG, QD
     Dates: start: 20110920

REACTIONS (1)
  - CHEST DISCOMFORT [None]
